FAERS Safety Report 8766689 (Version 1)
Quarter: 2012Q4

REPORT INFORMATION
  Report Type: 
  Country: US (occurrence: US)
  Receive Date: 20120904
  Receipt Date: 20120904
  Transmission Date: 20130627
  Serious: Yes (Other)
  Sender: FDA-Public Use
  Company Number: US-JNJFOC-20120809867

PATIENT
  Sex: Female
  Weight: 136.08 kg

DRUGS (7)
  1. DURAGESIC [Suspect]
     Indication: ARTHRALGIA
     Route: 062
  2. DURAGESIC [Suspect]
     Indication: ARTHRALGIA
     Route: 062
  3. DURAGESIC [Suspect]
     Indication: GOUT
     Route: 062
  4. DURAGESIC [Suspect]
     Indication: GOUT
     Route: 062
  5. GLIPIZIDE [Concomitant]
     Indication: DIABETES MELLITUS
     Route: 048
     Dates: start: 2007
  6. JANUVIA [Concomitant]
     Indication: DIABETES MELLITUS
     Route: 048
     Dates: start: 2000
  7. AN UNKNOWN MEDICATION [Concomitant]
     Indication: HYPERTENSION
     Route: 048
     Dates: start: 2000

REACTIONS (3)
  - Hypertension [Unknown]
  - Drug effect increased [Recovered/Resolved]
  - Poor quality drug administered [Not Recovered/Not Resolved]
